FAERS Safety Report 17425758 (Version 4)
Quarter: 2024Q2

REPORT INFORMATION
  Report Type: Other
  Country: GB (occurrence: None)
  Receive Date: 20200218
  Receipt Date: 20240606
  Transmission Date: 20240716
  Serious: Yes (Hospitalization)
  Sender: FDA-Public Use
  Company Number: GB-ROCHE-2343448

PATIENT
  Sex: Female

DRUGS (2)
  1. TOCILIZUMAB [Suspect]
     Active Substance: TOCILIZUMAB
     Indication: Rheumatoid arthritis
     Route: 058
     Dates: start: 20171117
  2. METHOTREXATE [Concomitant]
     Active Substance: METHOTREXATE

REACTIONS (12)
  - Transient ischaemic attack [Unknown]
  - Head injury [Unknown]
  - Orthostatic hypotension [Unknown]
  - Contusion [Unknown]
  - Eye contusion [Unknown]
  - Cerebral haemorrhage [Unknown]
  - Blood pressure decreased [Unknown]
  - Hypotension [Unknown]
  - Illness [Unknown]
  - Haemorrhage [Not Recovered/Not Resolved]
  - Balance disorder [Unknown]
  - Injury [Unknown]
